FAERS Safety Report 9188066 (Version 1)
Quarter: 2013Q1

REPORT INFORMATION
  Report Type: Spontaneous
  Country: US (occurrence: US)
  Receive Date: 20130325
  Receipt Date: 20130325
  Transmission Date: 20140127
  Serious: No
  Sender: FDA-Public Use
  Company Number: US-MYLANLABS-2013S1001732

PATIENT
  Age: 63 Year
  Sex: Female
  Weight: 83.92 kg

DRUGS (2)
  1. FENTANYL TRANSDERMAL SYSTEM [Suspect]
     Indication: NECK PAIN
     Dosage: Q72HR
     Route: 062
     Dates: start: 2010
  2. LORTAB [Concomitant]
     Indication: PAIN

REACTIONS (2)
  - Wrong technique in drug usage process [Not Recovered/Not Resolved]
  - No adverse event [Not Recovered/Not Resolved]
